FAERS Safety Report 21604309 (Version 1)
Quarter: 2022Q4

REPORT INFORMATION
  Report Type: Spontaneous
  Country: TW (occurrence: TW)
  Receive Date: 20221116
  Receipt Date: 20221116
  Transmission Date: 20230112
  Serious: Yes (Other)
  Sender: FDA-Public Use
  Company Number: TW-BAYER-2022A157672

PATIENT
  Sex: Female

DRUGS (1)
  1. YASMIN [Suspect]
     Active Substance: DROSPIRENONE\ETHINYL ESTRADIOL
     Indication: Endometrial hyperplasia
     Dosage: UNK
     Route: 048
     Dates: start: 20220520, end: 20220720

REACTIONS (4)
  - Depression suicidal [Recovering/Resolving]
  - Morose [Recovering/Resolving]
  - Affective disorder [Recovering/Resolving]
  - Off label use [None]

NARRATIVE: CASE EVENT DATE: 20220520
